FAERS Safety Report 13909967 (Version 1)
Quarter: 2017Q3

REPORT INFORMATION
  Report Type: Report from Study
  Country: GB (occurrence: GB)
  Receive Date: 20170828
  Receipt Date: 20170828
  Transmission Date: 20171127
  Serious: Yes (Disabling, Other)
  Sender: FDA-Public Use
  Company Number: GB-ROCHE-ITM201506IM017714

PATIENT
  Sex: Male

DRUGS (2)
  1. LANSOPRAZOLE. [Concomitant]
     Active Substance: LANSOPRAZOLE
  2. ESBRIET [Suspect]
     Active Substance: PIRFENIDONE
     Indication: IDIOPATHIC PULMONARY FIBROSIS
     Route: 048
     Dates: start: 20150601

REACTIONS (27)
  - Nasopharyngitis [Not Recovered/Not Resolved]
  - Lower respiratory tract infection [Not Recovered/Not Resolved]
  - Feeling abnormal [Unknown]
  - Productive cough [Not Recovered/Not Resolved]
  - Product taste abnormal [Unknown]
  - Oropharyngeal pain [Unknown]
  - Deafness [Unknown]
  - Eating disorder [Unknown]
  - Pain in extremity [Unknown]
  - Hypoacusis [Unknown]
  - Oxygen saturation decreased [Unknown]
  - Cerebrovascular accident [Unknown]
  - Insomnia [Unknown]
  - Gait disturbance [Unknown]
  - Sputum discoloured [Not Recovered/Not Resolved]
  - Pyrexia [Not Recovered/Not Resolved]
  - Tooth fracture [Unknown]
  - Foreign body in respiratory tract [Unknown]
  - Ear pruritus [Unknown]
  - Drug administration error [Unknown]
  - Herpes zoster [Unknown]
  - Dyspnoea [Unknown]
  - Vomiting [Unknown]
  - Drug dose omission [Unknown]
  - Overdose [Unknown]
  - Confusional state [Not Recovered/Not Resolved]
  - Cough [Recovered/Resolved]
